FAERS Safety Report 23133726 (Version 1)
Quarter: 2023Q4

REPORT INFORMATION
  Report Type: Spontaneous
  Country: FR (occurrence: FR)
  Receive Date: 20231101
  Receipt Date: 20231101
  Transmission Date: 20240109
  Serious: Yes (Hospitalization)
  Sender: FDA-Public Use
  Company Number: None

PATIENT
  Age: 24 Year
  Sex: Male

DRUGS (5)
  1. CLONAZEPAM [Suspect]
     Active Substance: CLONAZEPAM
  2. CANNABIS SATIVA SUBSP. INDICA TOP [Suspect]
     Active Substance: CANNABIS SATIVA SUBSP. INDICA TOP
     Dosage: 5 JOINTS/J
     Route: 055
  3. LYRICA [Suspect]
     Active Substance: PREGABALIN
     Dosage: BETWEEN 900 AND 1800MG/DAY
  4. COCAINE [Suspect]
     Active Substance: COCAINE
     Dosage: 1 TO 1.5G/DAY
  5. ALCOHOL [Suspect]
     Active Substance: ALCOHOL
     Dosage: CONSUMPTION OF MORE THAN 10 UNITS PER DAY

REACTIONS (2)
  - Intentional product misuse [Recovering/Resolving]
  - Drug dependence [Recovering/Resolving]

NARRATIVE: CASE EVENT DATE: 20230301
